FAERS Safety Report 21793010 (Version 1)
Quarter: 2022Q4

REPORT INFORMATION
  Report Type: Spontaneous
  Country: CA (occurrence: CA)
  Receive Date: 20221229
  Receipt Date: 20221229
  Transmission Date: 20230113
  Serious: Yes (Hospitalization)
  Sender: FDA-Public Use
  Company Number: CA-PFIZER INC-202200559844

PATIENT
  Age: 23 Year
  Sex: Female

DRUGS (5)
  1. ABRILADA [Suspect]
     Active Substance: ADALIMUMAB-AFZB
     Indication: Crohn^s disease
     Dosage: 1 DF, 160 MG WEEK 0, 80 MG WEEK 2, THEN 40 MG EVERY OTHER WEEK
     Route: 058
     Dates: start: 20220331
  2. ABRILADA [Suspect]
     Active Substance: ADALIMUMAB-AFZB
     Dosage: 1 DF, 160 MG WEEK 0, 80 MG WEEK 2, THEN 40 MG EVERY OTHER WEEK
     Route: 058
     Dates: start: 20220331, end: 2022
  3. ABRILADA [Suspect]
     Active Substance: ADALIMUMAB-AFZB
     Dosage: 1 DF, 160 MG WEEK 0, 80 MG WEEK 2, THEN 40 MG EVERY OTHER WEEK
     Route: 058
     Dates: start: 20220425
  4. ABRILADA [Suspect]
     Active Substance: ADALIMUMAB-AFZB
     Dosage: 40 MG, WEEKLY
     Route: 058
     Dates: start: 2022
  5. ABRILADA [Suspect]
     Active Substance: ADALIMUMAB-AFZB
     Dosage: 40 MG, WEEKLY
     Route: 058

REACTIONS (11)
  - Anal abscess [Recovering/Resolving]
  - Cough [Not Recovered/Not Resolved]
  - Foreign body reaction [Not Recovered/Not Resolved]
  - Anxiety [Unknown]
  - Fear of injection [Unknown]
  - Vessel puncture site pain [Recovering/Resolving]
  - Injection site extravasation [Recovering/Resolving]
  - Poor venous access [Unknown]
  - Injection site swelling [Unknown]
  - Off label use [Unknown]
  - Inappropriate schedule of product administration [Unknown]

NARRATIVE: CASE EVENT DATE: 20220101
